FAERS Safety Report 12297377 (Version 3)
Quarter: 2016Q2

REPORT INFORMATION
  Report Type: Report from Study
  Country: GB (occurrence: GB)
  Receive Date: 20160422
  Receipt Date: 20160516
  Transmission Date: 20160815
  Serious: Yes (Death, Hospitalization, Other)
  Sender: FDA-Public Use
  Company Number: GB-ASTRAZENECA-2016SE31444

PATIENT
  Age: 24912 Day
  Sex: Male

DRUGS (4)
  1. GEFITINIB [Concomitant]
     Active Substance: GEFITINIB
     Dates: start: 20130610, end: 20151103
  2. TAGRISSO [Suspect]
     Active Substance: OSIMERTINIB
     Route: 048
     Dates: start: 20160127, end: 20160321
  3. PREDNISOLONE. [Concomitant]
     Active Substance: PREDNISOLONE
     Dates: start: 20160322
  4. LANSOPRAZOLE. [Concomitant]
     Active Substance: LANSOPRAZOLE
     Dates: start: 20160322

REACTIONS (4)
  - Dyspnoea [Not Recovered/Not Resolved]
  - Death [Fatal]
  - Radiation pneumonitis [Recovering/Resolving]
  - Malignant neoplasm progression [Not Recovered/Not Resolved]

NARRATIVE: CASE EVENT DATE: 20160321
